FAERS Safety Report 24458603 (Version 1)
Quarter: 2024Q4

REPORT INFORMATION
  Report Type: Report from Study
  Country: US (occurrence: US)
  Receive Date: 20241018
  Receipt Date: 20241018
  Transmission Date: 20250114
  Serious: No
  Sender: ROCHE
  Company Number: US-ROCHE-3519399

PATIENT
  Age: 50 Year
  Sex: Female
  Weight: 88.2 kg

DRUGS (6)
  1. RITUXAN [Suspect]
     Active Substance: RITUXIMAB
     Indication: Autoimmune hepatitis
     Route: 041
     Dates: start: 20240227
  2. RITUXAN [Suspect]
     Active Substance: RITUXIMAB
     Indication: Hepatic cirrhosis
  3. CELLCEPT [Suspect]
     Active Substance: MYCOPHENOLATE MOFETIL
     Indication: Autoimmune hepatitis
     Route: 065
  4. TACROLIMUS [Concomitant]
     Active Substance: TACROLIMUS
  5. NURTEC ODT [Concomitant]
     Active Substance: RIMEGEPANT SULFATE
  6. AMITRIPTYLINE [Concomitant]
     Active Substance: AMITRIPTYLINE

REACTIONS (2)
  - Infusion related reaction [Unknown]
  - Off label use [Unknown]

NARRATIVE: CASE EVENT DATE: 20240227
